APPROVED DRUG PRODUCT: ACYCLOVIR SODIUM
Active Ingredient: ACYCLOVIR SODIUM
Strength: EQ 1GM BASE/VIAL
Dosage Form/Route: INJECTABLE;INJECTION
Application: A074596 | Product #001
Applicant: CHARTWELL INJECTABLES LLC
Approved: Apr 22, 1997 | RLD: No | RS: No | Type: DISCN